FAERS Safety Report 4482078-2 (Version None)
Quarter: 2004Q4

REPORT INFORMATION
  Report Type: 
  Country: None (occurrence: None)
  Receive Date: 20041020
  Receipt Date: 20041007
  Transmission Date: 20050328
  Serious: Yes (Death, Hospitalization)
  Sender: FDA-Public Use
  Company Number: 2004076717

PATIENT
  Age: 83 Year
  Sex: Male

DRUGS (2)
  1. LIPITOR [Suspect]
     Indication: DYSLIPIDAEMIA
     Dosage: 20 MG (20 MG, 1 IN 1 D), ORAL
     Route: 048
     Dates: start: 20020701
  2. CARDIAC THERAPY (CARDIAC THERAPY) [Concomitant]

REACTIONS (4)
  - BLOOD DISORDER [None]
  - CEREBRAL ISCHAEMIA [None]
  - INFECTION [None]
  - URINARY TRACT INFECTION [None]
